FAERS Safety Report 14327360 (Version 2)
Quarter: 2018Q1

REPORT INFORMATION
  Report Type: Spontaneous
  Country: US (occurrence: US)
  Receive Date: 20171227
  Receipt Date: 20180112
  Transmission Date: 20180509
  Serious: No
  Sender: FDA-Public Use
  Company Number: US-PFIZER INC-2017543192

PATIENT
  Age: 59 Year
  Sex: Female

DRUGS (10)
  1. METHOTREXATE SODIUM. [Suspect]
     Active Substance: METHOTREXATE SODIUM
     Indication: RHEUMATOID ARTHRITIS
     Dosage: UNK
  2. LEVALBUTEROL. [Suspect]
     Active Substance: LEVALBUTEROL
     Dosage: UNK
  3. PREMIUM (VALSARTAN) [Suspect]
     Active Substance: VALSARTAN
     Dosage: UNK
  4. HYDROCODONE [Suspect]
     Active Substance: HYDROCODONE
     Dosage: UNK
  5. VICODIN [Suspect]
     Active Substance: ACETAMINOPHEN\HYDROCODONE BITARTRATE
     Dosage: UNK
  6. SOLU-MEDROL [Suspect]
     Active Substance: METHYLPREDNISOLONE SODIUM SUCCINATE
     Dosage: UNK
  7. TRAMADOL. [Suspect]
     Active Substance: TRAMADOL
     Dosage: UNK
  8. ALEVE [Suspect]
     Active Substance: NAPROXEN SODIUM
     Dosage: UNK
  9. ESTROGENS CONJUGATED [Suspect]
     Active Substance: ESTROGENS, CONJUGATED
     Dosage: UNK
  10. ACETAMINOPHEN. [Suspect]
     Active Substance: ACETAMINOPHEN
     Dosage: UNK

REACTIONS (1)
  - Drug hypersensitivity [Unknown]
